FAERS Safety Report 11218300 (Version 1)
Quarter: 2015Q2

REPORT INFORMATION
  Report Type: Spontaneous
  Country: DK (occurrence: CN)
  Receive Date: 20150625
  Receipt Date: 20150625
  Transmission Date: 20150821
  Serious: Yes (Other)
  Sender: FDA-Public Use
  Company Number: CN-FRI-1000077660

PATIENT
  Age: 45 Year
  Sex: Female

DRUGS (2)
  1. ESCITALOPRAM [Suspect]
     Active Substance: ESCITALOPRAM OXALATE
     Indication: DEPRESSION
     Dosage: IN THE MORNING
     Route: 065
     Dates: start: 201503, end: 201504
  2. TRAZODONE HYDROCHLORIDE. [Concomitant]
     Active Substance: TRAZODONE HYDROCHLORIDE
     Indication: PRODUCT USED FOR UNKNOWN INDICATION
     Dosage: 0.5 - 1 TABLET PER DAY BEFORE SLEEPING, INTERMITTENTLY
     Route: 048

REACTIONS (2)
  - Intracranial aneurysm [Not Recovered/Not Resolved]
  - Dysphoria [Unknown]
